FAERS Safety Report 5953682-7 (Version None)
Quarter: 2008Q4

REPORT INFORMATION
  Report Type: 
  Country: None (occurrence: None)
  Receive Date: 20081114
  Receipt Date: 20081106
  Transmission Date: 20090506
  Serious: Yes (Hospitalization)
  Sender: FDA-Public Use
  Company Number: TW-ABBOTT-08P-153-0486006-00

PATIENT
  Age: 72 Year
  Sex: Female

DRUGS (8)
  1. VALPROATE SODIUM [Suspect]
     Indication: MANIA
     Route: 048
  2. VALPROATE SODIUM [Suspect]
     Route: 048
  3. LAMOTRIGINE [Interacting]
     Indication: BIPOLAR I DISORDER
     Route: 048
  4. LAMOTRIGINE [Interacting]
     Route: 048
  5. LAMOTRIGINE [Interacting]
     Route: 048
  6. LAMOTRIGINE [Interacting]
     Route: 048
  7. CLOZAPINE [Concomitant]
     Indication: MANIA
     Route: 048
  8. CLOZAPINE [Concomitant]
     Route: 048

REACTIONS (9)
  - ASTERIXIS [None]
  - ASTHENIA [None]
  - DRUG INTERACTION [None]
  - ELECTROENCEPHALOGRAM ABNORMAL [None]
  - HYPERAMMONAEMIA [None]
  - HYPERAMMONAEMIC ENCEPHALOPATHY [None]
  - LETHARGY [None]
  - METABOLIC ENCEPHALOPATHY [None]
  - TREMOR [None]
